FAERS Safety Report 8954411 (Version 1)
Quarter: 2012Q4

REPORT INFORMATION
  Report Type: 
  Country: US (occurrence: US)
  Receive Date: 20121207
  Receipt Date: 20121207
  Transmission Date: 20130627
  Serious: Yes (Death, Other)
  Sender: FDA-Public Use
  Company Number: US-TEVA-374789USA

PATIENT
  Sex: Female

DRUGS (2)
  1. TREANDA [Suspect]
     Indication: B-CELL LYMPHOMA
  2. RITUXIMAB [Suspect]

REACTIONS (3)
  - Herpes simplex [Fatal]
  - Encephalopathy [Fatal]
  - Neutropenia [Unknown]
